FAERS Safety Report 7784002-3 (Version None)
Quarter: 2011Q3

REPORT INFORMATION
  Report Type: 
  Country: None (occurrence: None)
  Receive Date: 20110926
  Receipt Date: 20110910
  Transmission Date: 20111222
  Serious: Yes (Hospitalization)
  Sender: FDA-Public Use
  Company Number: 2011AP002043

PATIENT
  Age: 36 Year
  Sex: Male

DRUGS (5)
  1. ATENOLOL [Suspect]
     Dosage: 10 G
  2. LACIDIPINE (LACIDIPINE) [Suspect]
  3. FLUOXETINE HYDROCHLORIDE [Suspect]
  4. NIFEDIPINE [Suspect]
  5. SERTRALINE HYDROCHLORIDE [Suspect]

REACTIONS (25)
  - ELECTROCARDIOGRAM QT PROLONGED [None]
  - LOSS OF CONSCIOUSNESS [None]
  - APHASIA [None]
  - ELECTROCARDIOGRAM QRS COMPLEX PROLONGED [None]
  - MULTIPLE DRUG OVERDOSE INTENTIONAL [None]
  - CARDIAC FAILURE [None]
  - COORDINATION ABNORMAL [None]
  - BLOOD POTASSIUM DECREASED [None]
  - HYPOXIA [None]
  - METABOLIC ACIDOSIS [None]
  - MULTI-ORGAN FAILURE [None]
  - ATAXIA [None]
  - PULMONARY OEDEMA [None]
  - RENAL FAILURE [None]
  - RHABDOMYOLYSIS [None]
  - HAEMODYNAMIC INSTABILITY [None]
  - GENERAL PHYSICAL HEALTH DETERIORATION [None]
  - CARDIAC ARREST [None]
  - TOXICITY TO VARIOUS AGENTS [None]
  - HYPOXIC-ISCHAEMIC ENCEPHALOPATHY [None]
  - SHOCK [None]
  - CONTINUOUS HAEMODIAFILTRATION [None]
  - LEFT VENTRICULAR HYPERTROPHY [None]
  - MULTIPLE DRUG OVERDOSE [None]
  - SINUS BRADYCARDIA [None]
